FAERS Safety Report 15613778 (Version 3)
Quarter: 2018Q4

REPORT INFORMATION
  Report Type: Report from Study
  Country: FR (occurrence: FR)
  Receive Date: 20181113
  Receipt Date: 20181203
  Transmission Date: 20190205
  Serious: Yes (Life-Threatening)
  Sender: FDA-Public Use
  Company Number: FR-PFIZER INC-2018463238

PATIENT
  Weight: 13.5 kg

DRUGS (14)
  1. SPASFON LYOC [Concomitant]
     Active Substance: PHLOROGLUCINOL
     Dosage: 10 MG, 1X/DAY
  2. AMIKLIN [Concomitant]
     Active Substance: AMIKACIN SULFATE
     Dosage: 250 MG, 1X/DAY
     Dates: start: 20181023, end: 20181023
  3. VANCOMYCIN [Concomitant]
     Active Substance: VANCOMYCIN
     Dosage: 400 MG, DAILY
     Dates: start: 20181023
  4. PANTOPRAZOLE [Concomitant]
     Active Substance: PANTOPRAZOLE
     Dosage: 15 MG, 2X/DAY
  5. MITOXANTRONE [Suspect]
     Active Substance: MITOXANTRONE HYDROCHLORIDE
     Dosage: 12 MG/M2, 2X/DAY
     Route: 042
     Dates: start: 20181005, end: 20181008
  6. PERFALGAN [Concomitant]
     Active Substance: ACETAMINOPHEN
     Dosage: 15 MG, UNK (6X/DAY)
  7. MORPHINE [Concomitant]
     Active Substance: MORPHINE
     Dosage: UNK UNK, 1X/DAY
     Route: 065
  8. GEMTUZUMAB OZOGAMICIN [Suspect]
     Active Substance: GEMTUZUMAB OZOGAMICIN
     Dosage: 3 MG/M2, 2X/DAY
     Route: 042
     Dates: start: 20181008, end: 20181008
  9. BACTRIM [Concomitant]
     Active Substance: SULFAMETHOXAZOLE\TRIMETHOPRIM
     Dosage: UNK
     Dates: end: 20181026
  10. TAZOCILLINE [Concomitant]
     Active Substance: PIPERACILLIN SODIUM\TAZOBACTAM SODIUM
     Dosage: 1 G, 2X/DAY
     Dates: start: 20181022
  11. ZOPHREN [ONDANSETRON HYDROCHLORIDE] [Concomitant]
     Active Substance: ONDANSETRON
     Dosage: 4 MG, 3X/DAY
  12. PLITICAN [Concomitant]
     Active Substance: ALIZAPRIDE HYDROCHLORIDE
     Dosage: 13 MG, 3X/DAY
     Dates: end: 20181025
  13. CYTARABINE. [Suspect]
     Active Substance: CYTARABINE
     Dosage: 1000 MG/M2, 3X/DAY
     Route: 042
     Dates: start: 20181005, end: 20181014
  14. AMBISOME [Concomitant]
     Active Substance: AMPHOTERICIN B
     Dosage: 45 MG, 2X/DAY

REACTIONS (1)
  - Febrile neutropenia [Not Recovered/Not Resolved]

NARRATIVE: CASE EVENT DATE: 20181023
